FAERS Safety Report 7045783-X (Version None)
Quarter: 2010Q4

REPORT INFORMATION
  Report Type: 
  Country: None (occurrence: None)
  Receive Date: 20101014
  Receipt Date: 20101001
  Transmission Date: 20110411
  Serious: Yes (Other)
  Sender: FDA-Public Use
  Company Number: FR-ELI_LILLY_AND_COMPANY-FR201006001353

PATIENT
  Age: 38 Year
  Sex: Male
  Weight: 78 kg

DRUGS (5)
  1. ZYPREXA [Suspect]
     Indication: BIPOLAR DISORDER
     Dosage: 20 MG, DAILY (1/D)
     Route: 048
     Dates: start: 20081209
  2. ZYPREXA [Suspect]
     Dosage: 5 MG, DAILY (1/D)
     Route: 048
  3. PIPORTIL [Concomitant]
     Indication: BIPOLAR DISORDER
     Dosage: 7.5 MG, MONTHLY (1/M)
     Route: 030
     Dates: start: 20090121
  4. TEMESTA [Concomitant]
     Indication: ANXIETY
     Dosage: 5 MG, DAILY (1/D)
     Route: 048
  5. TERCIAN [Concomitant]
     Indication: INSOMNIA
     Dosage: 40 MG, DAILY (1/D)
     Route: 048
     Dates: start: 20100331

REACTIONS (2)
  - LIVER INJURY [None]
  - PURPURA [None]
